FAERS Safety Report 9747296 (Version 1)
Quarter: 2013Q4

REPORT INFORMATION
  Report Type: Report from Study
  Country: US (occurrence: US)
  Receive Date: 20131212
  Receipt Date: 20131212
  Transmission Date: 20140711
  Serious: Yes (Hospitalization)
  Sender: FDA-Public Use
  Company Number: US-ROCHE-1316995

PATIENT
  Age: 57 Year
  Sex: Female
  Weight: 49.03 kg

DRUGS (10)
  1. ACTEMRA [Suspect]
     Indication: RHEUMATOID ARTHRITIS
     Route: 042
     Dates: start: 2011
  2. ACTEMRA [Suspect]
     Route: 042
     Dates: start: 201309
  3. ACTEMRA [Suspect]
     Route: 042
     Dates: start: 201310
  4. ACTEMRA [Suspect]
     Route: 042
     Dates: start: 201311
  5. ACTEMRA [Suspect]
     Route: 042
     Dates: start: 20131205
  6. METHOTREXATE [Concomitant]
     Indication: RHEUMATOID ARTHRITIS
     Route: 065
  7. MEDROL DOSEPAK [Concomitant]
     Indication: RHEUMATOID ARTHRITIS
     Route: 065
  8. FOLIC ACID [Concomitant]
     Indication: RHEUMATOID ARTHRITIS
     Route: 065
  9. CARTIA XT [Concomitant]
     Indication: RAYNAUD^S PHENOMENON
  10. TUMS ULTRA [Concomitant]
     Route: 065

REACTIONS (4)
  - Pelvic fracture [Recovering/Resolving]
  - Fall [Unknown]
  - Weight decreased [Not Recovered/Not Resolved]
  - Drug effect decreased [Unknown]
